FAERS Safety Report 17293472 (Version 1)
Quarter: 2020Q1

REPORT INFORMATION
  Report Type: Spontaneous
  Country: US (occurrence: US)
  Receive Date: 20200121
  Receipt Date: 20200121
  Transmission Date: 20200409
  Serious: Yes (Life-Threatening)
  Sender: FDA-Public Use
  Company Number: US-ADAREPHARM-2020-US-000004

PATIENT
  Age: 38 Year
  Sex: Female

DRUGS (2)
  1. PROPRANOLOL [Suspect]
     Active Substance: PROPRANOLOL HYDROCHLORIDE
  2. ESMOLOL [Suspect]
     Active Substance: ESMOLOL HYDROCHLORIDE

REACTIONS (3)
  - Hypoxia [Unknown]
  - Therapeutic product ineffective for unapproved indication [Unknown]
  - Haemodynamic instability [Recovered/Resolved]
